FAERS Safety Report 15343390 (Version 1)
Quarter: 2018Q3

REPORT INFORMATION
  Report Type: Spontaneous
  Country: FR (occurrence: FR)
  Receive Date: 20180903
  Receipt Date: 20180903
  Transmission Date: 20181010
  Serious: Yes (Hospitalization)
  Sender: FDA-Public Use
  Company Number: FR-SUN PHARMACEUTICAL INDUSTRIES LTD-2018R1-183231

PATIENT
  Age: 69 Year
  Sex: Male
  Weight: 43 kg

DRUGS (7)
  1. LEVETIRACETAM. [Suspect]
     Active Substance: LEVETIRACETAM
     Indication: SEIZURE
     Dosage: 500 MG, DAILY
     Route: 048
     Dates: start: 20180521, end: 20180605
  2. ATORVASTATINE [Concomitant]
     Active Substance: ATORVASTATIN
     Indication: HYPERCHOLESTEROLAEMIA
     Dosage: 80 MG, DAILY
     Route: 048
  3. CHLORPROMAZINE. [Suspect]
     Active Substance: CHLORPROMAZINE
     Indication: PRODUCT USED FOR UNKNOWN INDICATION
     Dosage: 3 GTT, UNK
     Route: 048
     Dates: end: 20180522
  4. CEFTRIAXONE BASE [Concomitant]
     Active Substance: CEFTRIAXONE
     Indication: INFECTION
     Dosage: 4 G, DAILY
     Route: 042
     Dates: start: 20180521, end: 20180525
  5. PERINDOPRIL [Concomitant]
     Active Substance: PERINDOPRIL
     Indication: HYPERTENSION
     Dosage: 8 MG, DAILY
     Route: 048
     Dates: end: 20180522
  6. PREGABALIN. [Suspect]
     Active Substance: PREGABALIN
     Indication: PRODUCT USED FOR UNKNOWN INDICATION
     Dosage: 75 MG, DAILY
     Route: 048
     Dates: end: 20180522
  7. CLONAZEPAM. [Suspect]
     Active Substance: CLONAZEPAM
     Indication: SEIZURE
     Dosage: UNK (1MG TOTAL)
     Route: 042
     Dates: start: 20180522, end: 20180522

REACTIONS (1)
  - Encephalopathy [Recovered/Resolved]

NARRATIVE: CASE EVENT DATE: 20180522
